FAERS Safety Report 18391905 (Version 3)
Quarter: 2021Q1

REPORT INFORMATION
  Report Type: Spontaneous
  Country: US (occurrence: US)
  Receive Date: 20201016
  Receipt Date: 20210107
  Transmission Date: 20210419
  Serious: Yes (Other)
  Sender: FDA-Public Use
  Company Number: US-GLAXOSMITHKLINE-US2020203946

PATIENT
  Sex: Female

DRUGS (1)
  1. ZEJULA [Suspect]
     Active Substance: NIRAPARIB
     Indication: MALIGNANT PERITONEAL NEOPLASM
     Dosage: 200 MG, QD (TWO 100MG CAPSULES)
     Dates: start: 20200824, end: 20201216

REACTIONS (7)
  - Recurrent cancer [Unknown]
  - Toothache [Unknown]
  - Sinus disorder [Unknown]
  - Illness [Unknown]
  - Gastric disorder [Unknown]
  - Tooth infection [Unknown]
  - Carbohydrate antigen 125 increased [Unknown]
